FAERS Safety Report 13802232 (Version 12)
Quarter: 2020Q2

REPORT INFORMATION
  Report Type: Spontaneous
  Country: US (occurrence: US)
  Receive Date: 20170727
  Receipt Date: 20200428
  Transmission Date: 20200713
  Serious: Yes (Hospitalization, Other)
  Sender: FDA-Public Use
  Company Number: US-ACTELION-A-NJ2017-157241

PATIENT
  Age: 79 Year
  Sex: Male

DRUGS (46)
  1. DOCUSATE [Concomitant]
     Active Substance: DOCUSATE
  2. FUROSEMIDE. [Concomitant]
     Active Substance: FUROSEMIDE
  3. NARCAN [Concomitant]
     Active Substance: NALOXONE HYDROCHLORIDE
  4. BISACODYL. [Concomitant]
     Active Substance: BISACODYL
     Dosage: UNK
  5. FOSAMAX [Concomitant]
     Active Substance: ALENDRONATE SODIUM
  6. IRON [Concomitant]
     Active Substance: IRON
     Dosage: UNK
     Route: 048
     Dates: start: 20190227
  7. VELETRI [Concomitant]
     Active Substance: EPOPROSTENOL
     Indication: PULMONARY ARTERIAL HYPERTENSION
     Route: 042
  8. ZOCOR [Concomitant]
     Active Substance: SIMVASTATIN
  9. CALCIUM CHLORIDE. [Concomitant]
     Active Substance: CALCIUM CHLORIDE
  10. LIDOCAINE. [Concomitant]
     Active Substance: LIDOCAINE
  11. MAGNESIUM CITRATE. [Concomitant]
     Active Substance: MAGNESIUM CITRATE
  12. CHLORHEXIDINE [Concomitant]
     Active Substance: CHLORHEXIDINE
  13. VITAMIN D3 [Concomitant]
     Active Substance: CHOLECALCIFEROL
     Dosage: UNK
     Dates: start: 20190227
  14. OXYGEN. [Concomitant]
     Active Substance: OXYGEN
  15. CEFAZOLIN [Concomitant]
     Active Substance: CEFAZOLIN
  16. SILDENAFIL. [Concomitant]
     Active Substance: SILDENAFIL
  17. CHOLECALCIFEROL [Concomitant]
     Active Substance: CHOLECALCIFEROL
     Dosage: UNK
     Dates: start: 20190611
  18. MIRALAX [Concomitant]
     Active Substance: POLYETHYLENE GLYCOL 3350
     Dosage: UNK
     Dates: start: 20190611
  19. TAMSULOSIN [Concomitant]
     Active Substance: TAMSULOSIN
     Dosage: UNK
     Dates: start: 20190611
  20. CEPHALEXIN. [Concomitant]
     Active Substance: CEPHALEXIN
     Dosage: UNK
     Dates: start: 20190227
  21. SIMVASTATIN. [Concomitant]
     Active Substance: SIMVASTATIN
     Dosage: UNK
     Dates: start: 20190227
  22. OPSUMIT [Suspect]
     Active Substance: MACITENTAN
     Indication: PULMONARY ARTERIAL HYPERTENSION
     Dosage: 10 MG, QD
     Route: 048
     Dates: start: 20161228
  23. DILAUDID [Concomitant]
     Active Substance: HYDROMORPHONE HYDROCHLORIDE
  24. MIDODRINE [Concomitant]
     Active Substance: MIDODRINE
  25. ENOXAPARIN [Concomitant]
     Active Substance: ENOXAPARIN
  26. ATORVASTATIN [Concomitant]
     Active Substance: ATORVASTATIN
     Dosage: UNK
     Dates: start: 20190611
  27. CYANOCOBALAMIN. [Concomitant]
     Active Substance: CYANOCOBALAMIN
     Dosage: UNK
     Dates: start: 20190227
  28. WARFARIN [Concomitant]
     Active Substance: WARFARIN
     Dosage: UNK
     Dates: start: 20180329
  29. DIGOXIN. [Concomitant]
     Active Substance: DIGOXIN
     Dosage: UNK
  30. MAGNESIUM HYDROXIDE. [Concomitant]
     Active Substance: MAGNESIUM HYDROXIDE
  31. REGLAN [Concomitant]
     Active Substance: METOCLOPRAMIDE HYDROCHLORIDE
  32. ZOFRAN [Concomitant]
     Active Substance: ONDANSETRON HYDROCHLORIDE
  33. NOREPINEPHRINE. [Concomitant]
     Active Substance: NOREPINEPHRINE
  34. VANCOMYCIN [Concomitant]
     Active Substance: VANCOMYCIN
  35. MAGNESIUM [Concomitant]
     Active Substance: MAGNESIUM
     Dosage: UNK
     Dates: start: 20190227
  36. GABAPENTIN. [Concomitant]
     Active Substance: GABAPENTIN
  37. NORCO [Concomitant]
     Active Substance: ACETAMINOPHEN\HYDROCODONE BITARTRATE
  38. SENOKOT [Concomitant]
     Active Substance: SENNOSIDES
  39. ALENDRONATE [Concomitant]
     Active Substance: ALENDRONATE SODIUM
  40. PANTOPRAZOLE [Concomitant]
     Active Substance: PANTOPRAZOLE
     Dosage: UNK
     Dates: start: 20190611
  41. AZITHROMYCIN ANHYDROUS. [Concomitant]
     Active Substance: AZITHROMYCIN ANHYDROUS
     Dosage: UNK
     Dates: start: 20190227
  42. ACETAMINOPHEN. [Concomitant]
     Active Substance: ACETAMINOPHEN
     Dosage: UNK
  43. FERROUS SULFATE. [Concomitant]
     Active Substance: FERROUS SULFATE
     Dosage: UNK
     Dates: start: 20190611
  44. TREPROSTINIL. [Concomitant]
     Active Substance: TREPROSTINIL
     Dosage: UNK
     Dates: start: 20190611
  45. OMEPRAZOLE. [Concomitant]
     Active Substance: OMEPRAZOLE
     Dosage: UNK
     Dates: start: 20190227
  46. HYDROCORTISONE. [Concomitant]
     Active Substance: HYDROCORTISONE
     Dosage: UNK
     Dates: start: 20180329

REACTIONS (16)
  - Pulmonary hypertension [Not Recovered/Not Resolved]
  - Hypotension [Recovered/Resolved]
  - Failure to thrive [Recovered/Resolved]
  - Arthralgia [Not Recovered/Not Resolved]
  - Product dose omission [Unknown]
  - Fall [Recovered/Resolved]
  - Respiratory failure [Recovered/Resolved]
  - Fluid overload [Recovered/Resolved]
  - Septic shock [Recovered/Resolved]
  - Oesophageal achalasia [Not Recovered/Not Resolved]
  - Wound dehiscence [Unknown]
  - Postoperative wound complication [Unknown]
  - Cardiac failure congestive [Recovered/Resolved]
  - Infection [Recovered/Resolved]
  - Nephrolithiasis [Recovered/Resolved]
  - Spinal fusion surgery [Recovered/Resolved with Sequelae]

NARRATIVE: CASE EVENT DATE: 20170611
